FAERS Safety Report 4884403-7 (Version None)
Quarter: 2006Q1

REPORT INFORMATION
  Report Type: 
  Country: None (occurrence: None)
  Receive Date: 20060117
  Receipt Date: 20060117
  Transmission Date: 20060701
  Serious: Yes (Hospitalization, Other)
  Sender: FDA-Public Use
  Company Number: None

PATIENT
  Sex: Male
  Weight: 83.1 kg

DRUGS (5)
  1. CYCLOPHOSPHAMIDE [Suspect]
     Indication: LYMPHOMA
     Dosage: SEE IMAGE
     Dates: start: 20040608
  2. FLUDARABINE PHOSPHATE [Suspect]
     Dosage: SEE IMAGE
     Dates: start: 20040608
  3. G-CSF FILGRASTIM, AMGEN [Suspect]
     Dosage: SEE IMAGE
     Dates: start: 20040608
  4. METHOTREXATE [Suspect]
     Dosage: SEE IMAGE
     Dates: start: 20040608
  5. ALLOPURINOL [Suspect]
     Dosage: SEE IMAGE
     Dates: start: 20050608

REACTIONS (5)
  - CHEST DISCOMFORT [None]
  - DYSPNOEA EXERTIONAL [None]
  - INTERSTITIAL LUNG DISEASE [None]
  - PERICARDIAL EFFUSION [None]
  - PRODUCTIVE COUGH [None]
